FAERS Safety Report 7524902-2 (Version None)
Quarter: 2011Q2

REPORT INFORMATION
  Report Type: 
  Country: None (occurrence: None)
  Receive Date: 20110602
  Receipt Date: 20110602
  Transmission Date: 20111010
  Serious: Yes (Life-Threatening)
  Sender: FDA-Public Use
  Company Number: None

PATIENT
  Age: 64 Year
  Sex: Female
  Weight: 68.0396 kg

DRUGS (1)
  1. TOVIAZ [Suspect]
     Indication: INCONTINENCE
     Dosage: 1 DAILY
     Dates: start: 20110527, end: 20110527

REACTIONS (3)
  - DYSPNOEA [None]
  - DRY THROAT [None]
  - ODYNOPHAGIA [None]
